FAERS Safety Report 26185936 (Version 1)
Quarter: 2025Q4

REPORT INFORMATION
  Report Type: Report from Study
  Country: EU (occurrence: EU)
  Receive Date: 20251222
  Receipt Date: 20251222
  Transmission Date: 20260118
  Serious: Yes (Disabling)
  Sender: TEVA
  Company Number: EU-TEVA-VS-3404214

PATIENT
  Age: 72 Year
  Sex: Female

DRUGS (5)
  1. TERIPARATIDE [Suspect]
     Active Substance: TERIPARATIDE
     Indication: Osteoporosis
     Dosage: FORM STRENGTH: 20 MCG/80MCL
     Route: 065
     Dates: start: 20251002
  2. OMEPRAZOLE [Concomitant]
     Active Substance: OMEPRAZOLE
     Indication: Gastrointestinal disorder prophylaxis
     Dosage: ONE IN THE MORNING, START DATE: SOME TIME AGO; END DATE: CONTINUES
  3. Velyntra [Concomitant]
     Indication: Pain
     Dosage: FORM STRENGTH: 44 MG/56 MG; TWO IN THE MORNING AND TWO AT NIGHT; START DATE: SOME TIME AGO; END D...
  4. FENTANYL [Concomitant]
     Active Substance: FENTANYL
     Indication: Pain
     Dosage: FORM STRENGTH: 12.5 MCG/H; ONE EVERY 72 HOURS; START DATE: SOME TIME AGO; END DATE: CONTINUES
  5. ACETAMINOPHEN [Concomitant]
     Active Substance: ACETAMINOPHEN
     Indication: Pain
     Dosage: TIME INTERVAL: AS NECESSARY: START DATE: SOME TIME AGO; END DATE: CONTINUES

REACTIONS (3)
  - Muscle spasms [Not Recovered/Not Resolved]
  - Arthralgia [Not Recovered/Not Resolved]
  - Bone pain [Not Recovered/Not Resolved]

NARRATIVE: CASE EVENT DATE: 20251001
